FAERS Safety Report 7642961-3 (Version None)
Quarter: 2011Q3

REPORT INFORMATION
  Report Type: 
  Country: None (occurrence: None)
  Receive Date: 20110728
  Receipt Date: 20090225
  Transmission Date: 20111222
  Serious: Yes (Other)
  Sender: FDA-Public Use
  Company Number: US-BAYER-200910304NA

PATIENT
  Age: 66 Year
  Sex: Male
  Weight: 75 kg

DRUGS (58)
  1. MULTIHANCE [Suspect]
     Indication: NUCLEAR MAGNETIC RESONANCE IMAGING
  2. GADOLINIUM IN UNSPECIFIED DRUG [Suspect]
     Indication: ANGIOGRAM
     Dosage: UNK
     Dates: start: 19990507
  3. GADOLINIUM IN UNSPECIFIED DRUG [Suspect]
     Indication: NUCLEAR MAGNETIC RESONANCE IMAGING
     Dosage: UNK
     Dates: start: 20050122
  4. GADOLINIUM IN UNSPECIFIED DRUG [Suspect]
     Dosage: UNK
     Dates: start: 20051201
  5. GADOLINIUM IN UNSPECIFIED DRUG [Suspect]
     Dosage: UNK
     Dates: start: 20060105
  6. GADOLINIUM IN UNSPECIFIED DRUG [Suspect]
     Dosage: UNK
     Dates: start: 20060913
  7. EPOGEN [Concomitant]
     Dosage: 4000 UNITS TIW WITH HD
     Route: 058
     Dates: start: 20030807
  8. COLCHICINE [Concomitant]
  9. FERROUS SULFATE TAB [Concomitant]
  10. ALBUMIN (HUMAN) [Concomitant]
  11. MAGNEVIST [Suspect]
     Dosage: 15 ML
     Dates: start: 20060316
  12. MAGNEVIST [Suspect]
     Dosage: 15 ML
     Dates: start: 20061013
  13. OMNISCAN [Suspect]
     Indication: ANGIOGRAM
     Dosage: MRA NECK/CAROTIDS TO EVALUATE DIZZINESS.
     Route: 042
     Dates: start: 20050930, end: 20050930
  14. ALENDRONATE SODIUM [Concomitant]
  15. CARBAMAZEPINE [Concomitant]
  16. SEVELAMER HYDROCHLORIDE [Concomitant]
     Dosage: PHOSPHATE BINDER- 800 MG, 2 TABS TID
  17. HEPARIN [Concomitant]
  18. AZATHIOPRINE [Concomitant]
  19. VITAMIN AND MINERAL PRENATAL SUPPLEMENT W/ FOLIC ACID CAP [Concomitant]
  20. PHOSLO [Concomitant]
  21. GADOLINIUM IN UNSPECIFIED DRUG [Suspect]
     Dosage: UNK
     Dates: start: 20050124
  22. GADOLINIUM IN UNSPECIFIED DRUG [Suspect]
     Dosage: UNK
     Dates: start: 20070710
  23. LISINOPRIL [Concomitant]
  24. CLONIDINE HYDROCHLORIDE [Concomitant]
  25. SIMVASTATIN [Concomitant]
  26. PLAVIX [Concomitant]
  27. METOPROLOL TARTRATE [Concomitant]
  28. CALCITONIN SALMON [Concomitant]
  29. NIFEREX [Concomitant]
  30. VITAMIN B-12 [Concomitant]
  31. OMNISCAN [Suspect]
     Indication: NUCLEAR MAGNETIC RESONANCE IMAGING
     Dosage: MRI BRAIN TO EVALUATE FOR METASTASTES.
     Route: 042
     Dates: start: 20050125, end: 20050125
  32. GADOLINIUM IN UNSPECIFIED DRUG [Suspect]
     Dosage: UNK
     Dates: start: 20060420
  33. FUROSEMIDE [Concomitant]
  34. SERTRALINE HYDROCHLORIDE [Concomitant]
  35. MULTIVITAMINS WITH IRON [VIT C,B12,D2,B3,P+,B6,RETINOL,B2,B1 HCL,V [Concomitant]
  36. ACIPHEX [Concomitant]
  37. QUININE SULFATE [Concomitant]
  38. SEVELAMER HYDROCHLORIDE [Concomitant]
  39. PROHANCE [Suspect]
     Indication: NUCLEAR MAGNETIC RESONANCE IMAGING
  40. AGGRENOX [Concomitant]
  41. SODIUM BICARBONATE [Concomitant]
  42. OXYGEN [Concomitant]
     Dosage: HOME OXYGEN THERAPY
  43. PHENYTOIN SODIUM CAP [Concomitant]
  44. TRAZODONE HCL [Concomitant]
  45. MAGNEVIST [Suspect]
     Indication: NUCLEAR MAGNETIC RESONANCE IMAGING
     Dosage: 15 ML
     Dates: start: 20050928
  46. OPTIMARK [Suspect]
     Indication: NUCLEAR MAGNETIC RESONANCE IMAGING
  47. GADOLINIUM IN UNSPECIFIED DRUG [Suspect]
     Dosage: UNK
     Dates: start: 20060912
  48. AMLODIPINE BESYLATE [Concomitant]
  49. FERROUS SULFATE TAB [Concomitant]
     Dosage: NUTRITION AND ANEMIA
     Dates: start: 20030807
  50. METOPROLOL TARTRATE [Concomitant]
  51. FELODIPINE [Concomitant]
  52. MAGNEVIST [Suspect]
     Dosage: 15 ML
     Dates: start: 20051221
  53. GADOLINIUM IN UNSPECIFIED DRUG [Suspect]
     Dosage: UNK
     Dates: start: 20060609
  54. CALCIUM ACETATE [Concomitant]
     Dosage: PHOSPHATE BINDER: 667MG, 2 CAPSULES 3X/DAY
  55. PREDNISONE [Concomitant]
  56. CLONIDINE HYDROCHLORIDE [Concomitant]
  57. DILTIAZEM [Concomitant]
  58. ACETYLSALICYLIC ACID SRT [Concomitant]

REACTIONS (40)
  - ARTHRALGIA [None]
  - PAIN OF SKIN [None]
  - PRURITUS [None]
  - IMPAIRED SELF-CARE [None]
  - SYNOVIAL DISORDER [None]
  - NEPHROGENIC SYSTEMIC FIBROSIS [None]
  - PAIN IN EXTREMITY [None]
  - GENERAL PHYSICAL HEALTH DETERIORATION [None]
  - HYPERTENSION [None]
  - SKIN TIGHTNESS [None]
  - MUSCULAR WEAKNESS [None]
  - ANHEDONIA [None]
  - ECCHYMOSIS [None]
  - PLANTAR FASCIITIS [None]
  - HYPOAESTHESIA [None]
  - JOINT RANGE OF MOTION DECREASED [None]
  - BONE PAIN [None]
  - SCAR [None]
  - BONE DENSITY DECREASED [None]
  - JOINT STIFFNESS [None]
  - SKIN HYPERTROPHY [None]
  - SKIN WRINKLING [None]
  - SKIN LESION [None]
  - BLISTER [None]
  - MYALGIA [None]
  - DEPRESSION [None]
  - YELLOW SKIN [None]
  - SKIN INDURATION [None]
  - BURNING SENSATION [None]
  - ANXIETY [None]
  - DISCOMFORT [None]
  - OEDEMA [None]
  - ASTHENIA [None]
  - PAIN [None]
  - EMOTIONAL DISTRESS [None]
  - GAIT DISTURBANCE [None]
  - SKIN DISORDER [None]
  - DRY SKIN [None]
  - MOBILITY DECREASED [None]
  - ERYTHEMA [None]
